FAERS Safety Report 6817879-6 (Version None)
Quarter: 2010Q3

REPORT INFORMATION
  Report Type: 
  Country: None (occurrence: None)
  Receive Date: 20100706
  Receipt Date: 20100701
  Transmission Date: 20110219
  Serious: Yes (Hospitalization)
  Sender: FDA-Public Use
  Company Number: AR-BRISTOL-MYERS SQUIBB COMPANY-15175771

PATIENT
  Age: 60 Year
  Sex: Female

DRUGS (1)
  1. ABATACEPT [Suspect]
     Indication: RHEUMATOID ARTHRITIS
     Dosage: 3 VIALS

REACTIONS (3)
  - CONFUSIONAL STATE [None]
  - HAEMATOMA [None]
  - PETECHIAE [None]
